FAERS Safety Report 4701605-0 (Version None)
Quarter: 2005Q2

REPORT INFORMATION
  Report Type: 
  Country: None (occurrence: None)
  Receive Date: 20050627
  Receipt Date: 20050614
  Transmission Date: 20051028
  Serious: Yes (Hospitalization)
  Sender: FDA-Public Use
  Company Number: 2005079937

PATIENT
  Age: 49 Year
  Sex: Female

DRUGS (2)
  1. GENOTROPIN [Suspect]
     Indication: OFF LABEL USE
     Dosage: 0.3 MG (5.3 MG, 1 IN 1 D)
     Dates: start: 20041101, end: 20041201
  2. GENOTROPIN [Suspect]
     Indication: OFF LABEL USE
     Dosage: 0.3 MG (5.3 MG, 1 IN 1 D)
     Dates: start: 20050605

REACTIONS (1)
  - BONE CYST [None]
